FAERS Safety Report 16859252 (Version 6)
Quarter: 2021Q1

REPORT INFORMATION
  Report Type: Spontaneous
  Country: ES (occurrence: ES)
  Receive Date: 20190926
  Receipt Date: 20210129
  Transmission Date: 20210419
  Serious: Yes (Other)
  Sender: FDA-Public Use
  Company Number: ES-009507513-1909ESP012072

PATIENT
  Age: 32 Year
  Sex: Female

DRUGS (2)
  1. IMPLANON NXT [Suspect]
     Active Substance: ETONOGESTREL
     Indication: CONTRACEPTION
     Dosage: 1 IMPLANT
     Route: 059
     Dates: start: 20160615, end: 20190715
  2. IMPLANON NXT [Suspect]
     Active Substance: ETONOGESTREL
     Dosage: A NEW IMPLANT
     Route: 059
     Dates: start: 20190715

REACTIONS (5)
  - Product dose omission issue [Unknown]
  - Unintended pregnancy [Recovered/Resolved]
  - Incorrect product administration duration [Unknown]
  - Complication associated with device [Recovered/Resolved]
  - Pregnancy with implant contraceptive [Recovered/Resolved]

NARRATIVE: CASE EVENT DATE: 2019
